FAERS Safety Report 7437239-7 (Version None)
Quarter: 2011Q2

REPORT INFORMATION
  Report Type: 
  Country: None (occurrence: None)
  Receive Date: 20110426
  Receipt Date: 20110329
  Transmission Date: 20111010
  Serious: No
  Sender: FDA-Public Use
  Company Number: US-B.I. PHARMACEUTICALS,INC./RIDGEFIELD-2011-BP-09527BP

PATIENT
  Age: 70 Year
  Sex: Female

DRUGS (4)
  1. ATROVENT HFA [Suspect]
     Indication: PNEUMONIA
     Dosage: 136 MCG
     Route: 055
     Dates: start: 20110322, end: 20110323
  2. ASPIRIN [Concomitant]
     Indication: PROPHYLAXIS
     Dosage: 81 MG
     Route: 048
     Dates: start: 20040101
  3. SIMVASTATIN [Concomitant]
     Indication: BLOOD CHOLESTEROL INCREASED
     Dosage: 40 MG
     Route: 048
     Dates: start: 20050101
  4. CO Q10 [Concomitant]
     Indication: PROPHYLAXIS
     Dosage: 100 MG
     Route: 048
     Dates: start: 20040101

REACTIONS (2)
  - CHOKING [None]
  - COUGH [None]
